FAERS Safety Report 8698320 (Version 2)
Quarter: 2013Q4

REPORT INFORMATION
  Report Type: Spontaneous
  Country: US (occurrence: US)
  Receive Date: 20120802
  Receipt Date: 20131031
  Transmission Date: 20140711
  Serious: Yes (Hospitalization, Disabling, Other)
  Sender: FDA-Public Use
  Company Number: US-009507513-1207USA011413

PATIENT
  Sex: Female

DRUGS (13)
  1. ZOCOR [Suspect]
     Dosage: UNK
     Route: 048
  2. PREMPRO [Suspect]
     Dosage: UNK
     Route: 048
  3. METFORMIN HYDROCHLORIDE [Suspect]
     Dosage: UNK
  4. HYDROCHLOROTHIAZIDE [Suspect]
     Dosage: UNK UNK, QD
  5. ASPIRIN [Suspect]
     Dosage: UNK MG, UNK
  6. METOPROLOL TARTRATE [Suspect]
     Dosage: 100 MG, BID
  7. LOPERAMIDE HYDROCHLORIDE [Suspect]
     Dosage: 2 MG, BID
  8. GLUCOPHAGE [Suspect]
     Dosage: 5 MG, UNK
  9. PLAVIX [Suspect]
     Dosage: UNK
  10. COUMADIN [Suspect]
  11. NATTOKINASE [Suspect]
     Dosage: 200 MG, BID
  12. LASIX (FUROSEMIDE) [Suspect]
  13. LOPRESSOR [Concomitant]
     Dosage: UNK, BID

REACTIONS (17)
  - Cerebrovascular accident [Unknown]
  - Musculoskeletal stiffness [Unknown]
  - Abasia [Unknown]
  - Physical disability [Unknown]
  - Faecal incontinence [Unknown]
  - Coordination abnormal [Unknown]
  - Memory impairment [Unknown]
  - Abdominal discomfort [Unknown]
  - Drug ineffective [Unknown]
  - Diabetes mellitus [Unknown]
  - Movement disorder [Unknown]
  - Loss of control of legs [Unknown]
  - Speech disorder [Unknown]
  - Cardiac disorder [Unknown]
  - Muscle disorder [Unknown]
  - Dysgraphia [Unknown]
  - Urinary incontinence [Unknown]
